FAERS Safety Report 10523517 (Version 1)
Quarter: 2014Q4

REPORT INFORMATION
  Report Type: Spontaneous
  Country: US (occurrence: US)
  Receive Date: 20141017
  Receipt Date: 20141017
  Transmission Date: 20150528
  Serious: Yes (Hospitalization, Other)
  Sender: FDA-Public Use
  Company Number: US-AMGEN-USASP2014078779

PATIENT
  Age: 67 Year
  Sex: Female

DRUGS (1)
  1. ENBREL [Suspect]
     Active Substance: ETANERCEPT
     Indication: RHEUMATOID ARTHRITIS
     Dosage: UNK UNK, QWK
     Route: 065
     Dates: start: 2008

REACTIONS (14)
  - Depression [Not Recovered/Not Resolved]
  - Condition aggravated [Not Recovered/Not Resolved]
  - Diabetes mellitus [Not Recovered/Not Resolved]
  - Injection site pain [Recovered/Resolved]
  - Arthralgia [Recovered/Resolved]
  - Deafness [Not Recovered/Not Resolved]
  - Grip strength decreased [Not Recovered/Not Resolved]
  - Neuralgia [Recovered/Resolved]
  - Cerebrovascular accident [Recovered/Resolved]
  - Bone erosion [Recovered/Resolved]
  - Vertigo [Not Recovered/Not Resolved]
  - Gait disturbance [Not Recovered/Not Resolved]
  - Suicidal ideation [Recovered/Resolved]
  - Frustration [Not Recovered/Not Resolved]

NARRATIVE: CASE EVENT DATE: 2013
